FAERS Safety Report 8352185 (Version 3)
Quarter: 2013Q2

REPORT INFORMATION
  Report Type: Spontaneous
  Country: CA (occurrence: CA)
  Receive Date: 20120124
  Receipt Date: 20130419
  Transmission Date: 20140414
  Serious: Yes (Death, Life-Threatening, Hospitalization)
  Sender: FDA-Public Use
  Company Number: CA-JNJFOC-20120109783

PATIENT
  Age: 63 Year
  Sex: Female
  Weight: 73.5 kg

DRUGS (3)
  1. REMICADE [Suspect]
     Indication: ANKYLOSING SPONDYLITIS
     Dosage: STOP DATE ALSO REPORTED AS DEC-2011
     Route: 042
     Dates: start: 20070108
  2. REMICADE [Suspect]
     Indication: ANKYLOSING SPONDYLITIS
     Dosage: STOP DATE ALSO REPORTED AS DEC-2011
     Route: 042
     Dates: start: 2008, end: 20120109
  3. METHOTREXATE [Concomitant]
     Indication: ANKYLOSING SPONDYLITIS
     Dosage: THERAPY DATES: 2008 OR 2009
     Route: 058

REACTIONS (1)
  - Pancreatic carcinoma [Fatal]
